FAERS Safety Report 6885627-X (Version None)
Quarter: 2010Q3

REPORT INFORMATION
  Report Type: 
  Country: None (occurrence: None)
  Receive Date: 20100729
  Receipt Date: 20080819
  Transmission Date: 20110219
  Serious: Yes (Other)
  Sender: FDA-Public Use
  Company Number: US-PFIZER INC-2008069454

PATIENT
  Sex: Male
  Weight: 85 kg

DRUGS (2)
  1. CELEBREX [Suspect]
     Indication: PLANTAR FASCIITIS
     Dates: start: 20080229, end: 20080701
  2. PREVACID [Concomitant]

REACTIONS (8)
  - CHEST PAIN [None]
  - DIZZINESS [None]
  - FEELING ABNORMAL [None]
  - HEADACHE [None]
  - HOT FLUSH [None]
  - HYPERTENSION [None]
  - PAIN [None]
  - PAIN IN EXTREMITY [None]
